FAERS Safety Report 18250772 (Version 1)
Quarter: 2020Q3

REPORT INFORMATION
  Report Type: Spontaneous
  Country: CA (occurrence: CA)
  Receive Date: 20200909
  Receipt Date: 20200909
  Transmission Date: 20201103
  Serious: Yes (Hospitalization)
  Sender: FDA-Public Use
  Company Number: CA-ANIPHARMA-2020-CA-001693

PATIENT
  Age: 70 Year
  Sex: Female

DRUGS (15)
  1. UNSPECIFIED EYE DROPS [Concomitant]
     Active Substance: UNSPECIFIED INGREDIENT
     Route: 065
  2. ATIVAN [Suspect]
     Active Substance: LORAZEPAM
     Route: 065
  3. JANUVIA [Concomitant]
     Active Substance: SITAGLIPTIN PHOSPHATE
     Route: 065
  4. POTASSIUM [Concomitant]
     Active Substance: POTASSIUM
     Route: 065
  5. MELATONIN [Concomitant]
     Active Substance: MELATONIN
     Route: 065
  6. ASAPHEN [Suspect]
     Active Substance: ASPIRIN
     Route: 065
  7. CITALOPRAM [Concomitant]
     Active Substance: CITALOPRAM HYDROBROMIDE
     Route: 065
  8. ATORVASTATIN CALCIUM. [Suspect]
     Active Substance: ATORVASTATIN CALCIUM
     Route: 065
  9. VITAMIN D NOS [Concomitant]
     Active Substance: VITAMIN D NOS
     Route: 065
  10. BISACODYL. [Concomitant]
     Active Substance: BISACODYL
     Route: 065
  11. VENLAFAXINE HYDROCHLORIDE. [Suspect]
     Active Substance: VENLAFAXINE HYDROCHLORIDE
     Route: 065
  12. METFORMIN [Concomitant]
     Active Substance: METFORMIN HYDROCHLORIDE
     Route: 065
  13. PROPRANOLOL EXTENDED RELEASE CAPSULES (NON?SPECIFIC) [Suspect]
     Active Substance: PROPRANOLOL HYDROCHLORIDE
     Indication: PRODUCT USED FOR UNKNOWN INDICATION
     Route: 065
  14. VITAMIN B12 [Concomitant]
     Active Substance: CYANOCOBALAMIN
     Route: 065
  15. CANDESARTAN. [Concomitant]
     Active Substance: CANDESARTAN
     Route: 065

REACTIONS (4)
  - Abscess [Recovered/Resolved]
  - Diarrhoea [Recovering/Resolving]
  - Abdominal pain [Recovered/Resolved]
  - Pyrexia [Recovered/Resolved]
